FAERS Safety Report 4684620-5 (Version None)
Quarter: 2005Q2

REPORT INFORMATION
  Report Type: 
  Country: None (occurrence: None)
  Receive Date: 20050531
  Receipt Date: 20050408
  Transmission Date: 20051028
  Serious: Yes (Hospitalization, Other)
  Sender: FDA-Public Use
  Company Number: USA050290618

PATIENT
  Age: 62 Year
  Sex: Female
  Weight: 84 kg

DRUGS (6)
  1. PROZAC [Suspect]
     Dosage: 20 MG
     Dates: start: 19941001, end: 20041201
  2. ZYPREXA [Suspect]
     Dates: start: 20030601, end: 20030801
  3. RELAFEN [Concomitant]
  4. TEGRETOL (CARBAMAZEPINE RIVOPHARM) [Concomitant]
  5. RISPERDAL [Concomitant]
  6. ASPIRIN [Concomitant]

REACTIONS (4)
  - COMA [None]
  - HOSPITALISATION [None]
  - MALAISE [None]
  - MOBILITY DECREASED [None]
